FAERS Safety Report 6696242-5 (Version None)
Quarter: 2010Q2

REPORT INFORMATION
  Report Type: 
  Country: None (occurrence: None)
  Receive Date: 20100426
  Receipt Date: 20100414
  Transmission Date: 20101027
  Serious: Yes (Congenital Anomaly)
  Sender: FDA-Public Use
  Company Number: CL-JNJFOC-20100204581

PATIENT
  Age: 7 Month
  Sex: Female

DRUGS (1)
  1. TRETINOIN [Suspect]
     Indication: DRUG EXPOSURE DURING PREGNANCY
     Route: 064

REACTIONS (3)
  - BRAIN MALFORMATION [None]
  - CEREBRAL ATROPHY [None]
  - PSYCHOMOTOR RETARDATION [None]
